FAERS Safety Report 9033217 (Version 1)
Quarter: 2013Q1

REPORT INFORMATION
  Report Type: Spontaneous
  Country: US (occurrence: US)
  Receive Date: 20130128
  Receipt Date: 20130128
  Transmission Date: 20140127
  Serious: No
  Sender: FDA-Public Use
  Company Number: US-ASTRAZENECA-2013SE03168

PATIENT
  Age: 67 Year
  Sex: Male
  Weight: 73 kg

DRUGS (4)
  1. SYMBICORT PMDI [Suspect]
     Indication: BRONCHITIS
     Dosage: 160/4.5 UNKNOWN DOSE
     Route: 055
     Dates: start: 2012, end: 2012
  2. DAILY YOGURT WITH LIVE CULTURES [Concomitant]
     Indication: CANDIDA INFECTION
  3. MOUTHWASH WITHOUT ALCOHOL [Concomitant]
     Indication: CANDIDA INFECTION
  4. NYSTATIN [Concomitant]
     Indication: CANDIDA INFECTION

REACTIONS (2)
  - Candida infection [Not Recovered/Not Resolved]
  - Off label use [Recovered/Resolved]
